FAERS Safety Report 5086553-1 (Version None)
Quarter: 2006Q3

REPORT INFORMATION
  Report Type: 
  Country: None (occurrence: None)
  Receive Date: 20060823
  Receipt Date: 20060720
  Transmission Date: 20061208
  Serious: Yes (Hospitalization)
  Sender: FDA-Public Use
  Company Number: US-GLAXOSMITHKLINE-A0612927A

PATIENT
  Age: 62 Year
  Sex: Female
  Weight: 97.1 kg

DRUGS (6)
  1. CITRUCEL SUGAR-FREE SUSPENSION ORANGE [Suspect]
     Indication: CONSTIPATION
     Route: 048
     Dates: end: 20060720
  2. COUMADIN [Concomitant]
  3. ADVAIR DISKUS 100/50 [Concomitant]
  4. ACCOLATE [Concomitant]
  5. ISOSORBIDE DINITRATE [Concomitant]
  6. PLAVIX [Concomitant]

REACTIONS (6)
  - ABDOMINAL PAIN UPPER [None]
  - FREQUENT BOWEL MOVEMENTS [None]
  - HAEMATOCHEZIA [None]
  - NAUSEA [None]
  - PHARMACEUTICAL PRODUCT COMPLAINT [None]
  - RECTAL HAEMORRHAGE [None]
